FAERS Safety Report 7483138-4 (Version None)
Quarter: 2011Q2

REPORT INFORMATION
  Report Type: 
  Country: None (occurrence: None)
  Receive Date: 20110516
  Receipt Date: 20110506
  Transmission Date: 20111010
  Serious: Yes (Death, Hospitalization, Other)
  Sender: FDA-Public Use
  Company Number: US-MERCK-0805USA00699

PATIENT
  Age: 47 Year
  Sex: Female
  Weight: 94 kg

DRUGS (2)
  1. FOSAMAX [Suspect]
     Route: 048
     Dates: start: 19960101
  2. ZOMETA [Concomitant]
     Route: 041
     Dates: start: 20060501

REACTIONS (40)
  - OSTEONECROSIS OF JAW [None]
  - BREAST CANCER IN SITU [None]
  - INTESTINAL FUNCTIONAL DISORDER [None]
  - VENOUS THROMBOSIS [None]
  - PERIODONTAL INFECTION [None]
  - OEDEMA MOUTH [None]
  - PERIODONTITIS [None]
  - ADVERSE EVENT [None]
  - CONGENITAL ANOMALY [None]
  - INTESTINAL OBSTRUCTION [None]
  - TOOTH ABSCESS [None]
  - ARRHYTHMIA [None]
  - HYPOTHYROIDISM [None]
  - HAEMORRHAGE [None]
  - SMALL INTESTINAL OBSTRUCTION [None]
  - MULTIPLE MYELOMA [None]
  - TOOTH DISORDER [None]
  - DENTAL NECROSIS [None]
  - INTESTINAL POLYP [None]
  - INFECTION [None]
  - RIB FRACTURE [None]
  - OSTEOARTHRITIS [None]
  - ANAEMIA [None]
  - BIOPSY LYMPH GLAND ABNORMAL [None]
  - GASTROINTESTINAL HAEMORRHAGE [None]
  - ANAEMIA POSTOPERATIVE [None]
  - ORAL PAIN [None]
  - TRANSIENT ISCHAEMIC ATTACK [None]
  - RESPIRATORY FAILURE [None]
  - PNEUMONIA [None]
  - SWELLING FACE [None]
  - DRUG INTOLERANCE [None]
  - CELLULITIS [None]
  - LUNG NEOPLASM MALIGNANT [None]
  - PEUTZ-JEGHERS SYNDROME [None]
  - URINARY TRACT INFECTION [None]
  - THROMBOCYTOPENIA [None]
  - MALLORY-WEISS SYNDROME [None]
  - POST PROCEDURAL INFECTION [None]
  - OEDEMA PERIPHERAL [None]
